FAERS Safety Report 11268051 (Version 1)
Quarter: 2015Q3

REPORT INFORMATION
  Report Type: Spontaneous
  Country: TR (occurrence: TR)
  Receive Date: 20150713
  Receipt Date: 20150713
  Transmission Date: 20151125
  Serious: Yes (Hospitalization)
  Sender: FDA-Public Use
  Company Number: TR-ALEMBIC PHARMACEUTICALS LIMITED-2015SCAL000374

PATIENT
  Age: 32 Year
  Sex: Male

DRUGS (9)
  1. QUETIAPINE FUMARATE. [Suspect]
     Active Substance: QUETIAPINE FUMARATE
     Dosage: 200 MG, QD
     Dates: start: 201209
  2. LITHIUM. [Concomitant]
     Active Substance: LITHIUM
     Indication: MANIA
     Dosage: 900 MG, QD
  3. OLANZAPINE. [Suspect]
     Active Substance: OLANZAPINE
     Dosage: 200 MG, QD
     Dates: start: 201209
  4. QUETIAPINE FUMARATE. [Suspect]
     Active Substance: QUETIAPINE FUMARATE
     Indication: MANIA
     Dosage: 100-800 MG/DAY
     Dates: start: 2001, end: 2004
  5. QUETIAPINE FUMARATE. [Suspect]
     Active Substance: QUETIAPINE FUMARATE
     Dosage: 600 MG, QD
     Dates: start: 2009
  6. OLANZAPINE. [Suspect]
     Active Substance: OLANZAPINE
     Indication: MANIA
     Dosage: 20 MG, QD
     Dates: start: 2004
  7. LITHIUM. [Concomitant]
     Active Substance: LITHIUM
     Dosage: 1200 MG, QD
     Dates: start: 2009, end: 201203
  8. LITHIUM. [Concomitant]
     Active Substance: LITHIUM
     Dosage: 1200 MG, QD
     Dates: start: 201209
  9. QUETIAPINE FUMARATE. [Suspect]
     Active Substance: QUETIAPINE FUMARATE
     Dosage: 600 MG, QD
     Dates: start: 2011, end: 201203

REACTIONS (2)
  - Meige^s syndrome [Recovering/Resolving]
  - Blepharospasm [Recovering/Resolving]
